FAERS Safety Report 9544002 (Version 1)
Quarter: 2013Q3

REPORT INFORMATION
  Report Type: Report from Study
  Country: PH (occurrence: PH)
  Receive Date: 20130923
  Receipt Date: 20130923
  Transmission Date: 20140515
  Serious: Yes (Death, Hospitalization)
  Sender: FDA-Public Use
  Company Number: PH-BAXTER-2013BAX036241

PATIENT
  Age: 79 Year
  Sex: Female

DRUGS (1)
  1. DIANEAL PD2 WITH 1.5% DEXTROSE [Suspect]
     Indication: PERITONEAL DIALYSIS
     Route: 033
     Dates: start: 2013, end: 201307

REACTIONS (4)
  - Cardio-respiratory arrest [Fatal]
  - Blood pressure decreased [Unknown]
  - Oedema [Unknown]
  - Device leakage [Unknown]
